FAERS Safety Report 4893286-0 (Version None)
Quarter: 2006Q1

REPORT INFORMATION
  Report Type: 
  Country: None (occurrence: None)
  Receive Date: 20060124
  Receipt Date: 20060112
  Transmission Date: 20060701
  Serious: Yes (Other)
  Sender: FDA-Public Use
  Company Number: GBWYE151517NOV05

PATIENT
  Age: 38 Year
  Sex: Female

DRUGS (3)
  1. EFFEXOR XR [Suspect]
     Indication: DEPRESSION
     Dosage: SEE IMAGE
     Route: 048
     Dates: start: 20030901, end: 20050902
  2. UNSPECIFIED ANTIDEPRESSANT (UNSPECIFIED ANTIDEPRESSANT) [Concomitant]
  3. EVENING PRIMROSE (EVENING PRIMROSE OIL) [Concomitant]

REACTIONS (7)
  - ABORTION SPONTANEOUS [None]
  - DEPRESSION [None]
  - DISEASE RECURRENCE [None]
  - DRUG EXPOSURE DURING PREGNANCY [None]
  - DRUG WITHDRAWAL SYNDROME [None]
  - INTRA-UTERINE DEATH [None]
  - THERAPY NON-RESPONDER [None]
